FAERS Safety Report 5896961-4 (Version None)
Quarter: 2008Q3

REPORT INFORMATION
  Report Type: 
  Country: None (occurrence: None)
  Receive Date: 20080924
  Receipt Date: 20080219
  Transmission Date: 20090109
  Serious: Yes (Other)
  Sender: FDA-Public Use
  Company Number: US-ASTRAZENECA-2008UW03421

PATIENT
  Sex: Male

DRUGS (2)
  1. SEROQUEL [Suspect]
     Indication: BIPOLAR I DISORDER
     Route: 048
  2. SEROQUEL [Suspect]
     Dosage: REDUCED
     Route: 048

REACTIONS (2)
  - PARKINSONISM [None]
  - TARDIVE DYSKINESIA [None]
